FAERS Safety Report 23654491 (Version 2)
Quarter: 2024Q2

REPORT INFORMATION
  Report Type: Report from Study
  Country: BE (occurrence: BE)
  Receive Date: 20240320
  Receipt Date: 20240506
  Transmission Date: 20240716
  Serious: Yes (Other)
  Sender: FDA-Public Use
  Company Number: BE-GLAXOSMITHKLINE-BE2024EME033257

PATIENT

DRUGS (1)
  1. MEPOLIZUMAB [Suspect]
     Active Substance: MEPOLIZUMAB
     Indication: Chronic rhinosinusitis with nasal polyps
     Dosage: UNK, Q8W

REACTIONS (2)
  - Surgery [Recovering/Resolving]
  - Product prescribing error [Unknown]

NARRATIVE: CASE EVENT DATE: 20240312
